FAERS Safety Report 10694286 (Version 1)
Quarter: 2015Q1

REPORT INFORMATION
  Report Type: Spontaneous
  Country: TR (occurrence: TR)
  Receive Date: 20150107
  Receipt Date: 20150107
  Transmission Date: 20150721
  Serious: Yes (Hospitalization)
  Sender: FDA-Public Use
  Company Number: TR-CIPLA LTD.-2014TR02997

PATIENT

DRUGS (3)
  1. CARBOPLATIN. [Suspect]
     Active Substance: CARBOPLATIN
     Dosage: 1.2 G/M2, DIVIDED TO 6 CONSECUTIVE DAYS
  2. IFOSFAMIDE. [Suspect]
     Active Substance: IFOSFAMIDE
     Dosage: 12 G/M2, DIVIDED TO 6 CONSECUTIVE DAYS
  3. ETOPOSIDE. [Suspect]
     Active Substance: ETOPOSIDE
     Dosage: 1.2 G/M2, DIVIDED TO 6 CONSECUTIVE DAYS

REACTIONS (1)
  - Renal impairment [Recovered/Resolved]
